FAERS Safety Report 15938997 (Version 1)
Quarter: 2019Q1

REPORT INFORMATION
  Report Type: Spontaneous
  Country: DE (occurrence: DE)
  Receive Date: 20190208
  Receipt Date: 20190208
  Transmission Date: 20190417
  Serious: Yes (Other)
  Sender: FDA-Public Use
  Company Number: DE-ASTRAZENECA-2019SE18040

PATIENT
  Sex: Male

DRUGS (2)
  1. CRESTOR [Suspect]
     Active Substance: ROSUVASTATIN CALCIUM
     Route: 048
     Dates: end: 2018
  2. THYRONAJOD [Concomitant]
     Active Substance: LEVOTHYROXINE SODIUM\POTASSIUM IODIDE

REACTIONS (8)
  - Monoplegia [Unknown]
  - Neuropathy peripheral [Unknown]
  - Palatal swelling [Unknown]
  - Muscle atrophy [Unknown]
  - Gait disturbance [Unknown]
  - Muscle spasms [Unknown]
  - Muscular weakness [Unknown]
  - Myopathy [Unknown]
